FAERS Safety Report 8425149-8 (Version None)
Quarter: 2012Q2

REPORT INFORMATION
  Report Type: 
  Country: None (occurrence: None)
  Receive Date: 20120531
  Receipt Date: 20120518
  Transmission Date: 20120825
  Serious: Yes (Other)
  Sender: FDA-Public Use
  Company Number: ENTC2012-0224

PATIENT
  Age: 64 Year
  Sex: Male

DRUGS (3)
  1. STALEVO (LEVODOPA, CARBIDOPA, ENTACAPONE) [Suspect]
     Indication: PARKINSON'S DISEASE
     Dosage: 3 DF DAILY
     Route: 048
  2. MODOPAR [Concomitant]
  3. TRIVASTAL [Concomitant]

REACTIONS (3)
  - CHOLELITHIASIS [None]
  - CHOLESTASIS [None]
  - GAMMA-GLUTAMYLTRANSFERASE INCREASED [None]
